FAERS Safety Report 10032817 (Version 2)
Quarter: 2014Q1

REPORT INFORMATION
  Report Type: Report from Study
  Country: US (occurrence: US)
  Receive Date: 20140324
  Receipt Date: 20140324
  Transmission Date: 20141002
  Serious: Yes (Hospitalization, Other)
  Sender: FDA-Public Use
  Company Number: US-BAYER-2013-133401

PATIENT
  Age: 63 Year
  Sex: Male

DRUGS (2)
  1. NEXAVAR [Suspect]
     Indication: RENAL CELL CARCINOMA
     Dosage: 400 MG, BID
     Route: 048
     Dates: start: 20131021, end: 20131030
  2. NEXAVAR [Suspect]
     Indication: RENAL CELL CARCINOMA
     Dosage: 200 MG, QD
     Route: 048
     Dates: start: 2013, end: 20131216

REACTIONS (4)
  - Pancreatic enzymes increased [Recovered/Resolved]
  - Skin odour abnormal [None]
  - Adverse reaction [None]
  - Abdominal pain upper [None]
